FAERS Safety Report 15151927 (Version 1)
Quarter: 2018Q3

REPORT INFORMATION
  Report Type: Other
  Country: GB (occurrence: GB)
  Receive Date: 20180717
  Receipt Date: 20180717
  Transmission Date: 20181010
  Serious: Yes (Hospitalization, Other)
  Sender: FDA-Public Use
  Company Number: GB-ORCHID HEALTHCARE-2052199

PATIENT
  Age: 56 Year
  Sex: Male

DRUGS (1)
  1. LEVOFLOXACIN. [Suspect]
     Active Substance: LEVOFLOXACIN
     Indication: LEGIONELLA INFECTION
     Route: 065

REACTIONS (1)
  - Thrombotic microangiopathy [Recovered/Resolved]
